FAERS Safety Report 6299981-3 (Version None)
Quarter: 2009Q3

REPORT INFORMATION
  Report Type: 
  Country: None (occurrence: None)
  Receive Date: 20090806
  Receipt Date: 20090730
  Transmission Date: 20100115
  Serious: Yes (Death, Hospitalization)
  Sender: FDA-Public Use
  Company Number: JP-AVENTIS-200912067JP

PATIENT
  Age: 76 Year
  Sex: Female
  Weight: 48.5 kg

DRUGS (16)
  1. AMARYL [Suspect]
     Indication: TYPE 2 DIABETES MELLITUS
     Dosage: DOSE: 1 TABLET
     Route: 048
     Dates: start: 20080910
  2. ORAL BLOOD GLUCOSE LOWERING DRUGS [Suspect]
     Indication: TYPE 2 DIABETES MELLITUS
     Dosage: DOSE: 1 TABLET
     Route: 048
     Dates: start: 20081204
  3. ADALAT CC [Concomitant]
     Indication: HYPERTENSION
     Dosage: DOSE: 1 TABLET
     Route: 048
     Dates: start: 20060210, end: 20090724
  4. ADALAT CC [Concomitant]
     Dosage: DOSE: 1 TABLET
     Dates: start: 20090226
  5. DIOVANE [Concomitant]
     Indication: HYPERTENSION
     Dosage: DOSE: 1 TABLET
     Route: 048
     Dates: start: 20060516, end: 20090724
  6. MEVALOTIN [Concomitant]
     Indication: LIPID METABOLISM DISORDER
     Dosage: DOSE: 1 TABLET
     Route: 048
     Dates: start: 20060620, end: 20090724
  7. MYSLEE [Concomitant]
     Indication: INSOMNIA
     Dosage: DOSE: 1 TABLET
     Route: 048
     Dates: start: 20080610, end: 20090724
  8. OPALMON [Concomitant]
     Indication: ILIAC ARTERY OCCLUSION
     Dosage: DOSE: 1 TABLET
     Route: 048
     Dates: start: 20090519, end: 20090724
  9. MUCOSTA [Concomitant]
     Dosage: DOSE: 1 TABLETTID
     Route: 048
     Dates: start: 20090519, end: 20090724
  10. PALUX [Concomitant]
     Indication: ILIAC ARTERY OCCLUSION
     Dosage: DOSE: 2 ML
     Route: 051
     Dates: start: 20090521, end: 20090715
  11. GASLON [Concomitant]
     Dosage: DOSE: 1 TABLET
     Route: 048
     Dates: start: 20090715, end: 20090724
  12. HYPEN [Concomitant]
     Indication: SCIATICA
     Dosage: DOSE: 1 TABLET
     Route: 048
     Dates: start: 20090715, end: 20090724
  13. LOXONIN                            /00890701/ [Concomitant]
     Indication: SCIATICA
     Dates: start: 20090519, end: 20090615
  14. LOXONIN                            /00890701/ [Concomitant]
     Dates: start: 20090626, end: 20090714
  15. METHYCOBAL                         /00056201/ [Concomitant]
     Indication: SCIATICA
     Dates: start: 20090519, end: 20090615
  16. METHYCOBAL                         /00056201/ [Concomitant]
     Dates: start: 20090626, end: 20090714

REACTIONS (2)
  - ARRHYTHMIA [None]
  - SCIATICA [None]
